FAERS Safety Report 5759253-X (Version None)
Quarter: 2008Q2

REPORT INFORMATION
  Report Type: 
  Country: None (occurrence: None)
  Receive Date: 20080604
  Receipt Date: 20080529
  Transmission Date: 20081010
  Serious: Yes (Other)
  Sender: FDA-Public Use
  Company Number: CL-ABBOTT-08P-167-0452567-00

PATIENT
  Age: 34 Year
  Sex: Male

DRUGS (1)
  1. ADALIMUMAB [Suspect]
     Indication: DRUG USE FOR UNKNOWN INDICATION
     Dosage: NOT REPORTED

REACTIONS (3)
  - BLOOD GLUCOSE DECREASED [None]
  - GUILLAIN-BARRE SYNDROME [None]
  - PSORIATIC ARTHROPATHY [None]
